FAERS Safety Report 18811256 (Version 3)
Quarter: 2021Q1

REPORT INFORMATION
  Report Type: Spontaneous
  Country: BE (occurrence: BE)
  Receive Date: 20210129
  Receipt Date: 20210209
  Transmission Date: 20210419
  Serious: Yes (Hospitalization, Other)
  Sender: FDA-Public Use
  Company Number: BE-ROCHE-2759567

PATIENT
  Age: 77 Year
  Sex: Male

DRUGS (3)
  1. LACTULOSE. [Concomitant]
     Active Substance: LACTULOSE
  2. ATEZOLIZUMAB. [Suspect]
     Active Substance: ATEZOLIZUMAB
     Indication: HEPATOCELLULAR CARCINOMA
     Dosage: 2 INTRAVENOUS INFUSIONS: 1200 MG OF TECENTRIQ IN 250 ML OF 0.9% NACL
     Route: 042
     Dates: start: 20210111
  3. AVASTIN [Suspect]
     Active Substance: BEVACIZUMAB
     Indication: HEPATOCELLULAR CARCINOMA
     Dosage: 1080 MG OF AVASTIN IN 250 ML OF 0.9% NACL
     Route: 042
     Dates: start: 20210111

REACTIONS (2)
  - Hepatic encephalopathy [Recovered/Resolved]
  - Hepatic function abnormal [Unknown]
